FAERS Safety Report 7435104-2 (Version None)
Quarter: 2011Q2

REPORT INFORMATION
  Report Type: 
  Country: None (occurrence: None)
  Receive Date: 20110425
  Receipt Date: 20110419
  Transmission Date: 20111010
  Serious: Yes (Other)
  Sender: FDA-Public Use
  Company Number: BR-ABBOTT-11P-020-0720432-00

PATIENT
  Age: 4 Year
  Sex: Male

DRUGS (2)
  1. VALPAKINE ORAL SOULUTION [Suspect]
     Indication: CEREBRAL DISORDER
     Dosage: 30 DROPS IN THE AM, 30 DROPS IN THE PM
     Route: 048
     Dates: start: 20090101
  2. CLONAZEPAM [Concomitant]
     Indication: ANXIOLYTIC THERAPY
     Dates: start: 20100101

REACTIONS (4)
  - PRODUCT QUALITY ISSUE [None]
  - DYSPNOEA [None]
  - EPILEPSY [None]
  - DRUG INEFFECTIVE [None]
